FAERS Safety Report 26184851 (Version 1)
Quarter: 2025Q4

REPORT INFORMATION
  Report Type: Spontaneous
  Country: US (occurrence: US)
  Receive Date: 20251222
  Receipt Date: 20251222
  Transmission Date: 20260118
  Serious: Yes (Other)
  Sender: JOHNSON AND JOHNSON
  Company Number: US-JNJFOC-20251215595

PATIENT

DRUGS (4)
  1. ERLEADA [Suspect]
     Active Substance: APALUTAMIDE
     Indication: Prostate cancer
  2. PROLIA [Concomitant]
     Active Substance: DENOSUMAB
     Indication: Bone disorder
  3. VITAMIN D [Concomitant]
     Active Substance: VITAMIN D NOS
     Indication: Product used for unknown indication
  4. ELIGARD [Concomitant]
     Active Substance: LEUPROLIDE ACETATE
     Indication: Hormone therapy

REACTIONS (10)
  - Prostate cancer [Unknown]
  - Hip surgery [Unknown]
  - Muscular weakness [Unknown]
  - Hot flush [Unknown]
  - Peripheral swelling [Unknown]
  - Gait inability [Unknown]
  - Blood testosterone abnormal [Unknown]
  - Arthralgia [Unknown]
  - Fatigue [Unknown]
  - Insomnia [Unknown]
